FAERS Safety Report 5152606-2 (Version None)
Quarter: 2006Q4

REPORT INFORMATION
  Report Type: 
  Country: None (occurrence: None)
  Receive Date: 20061109
  Receipt Date: 20061026
  Transmission Date: 20070319
  Serious: Yes (Hospitalization, Other)
  Sender: FDA-Public Use
  Company Number: SPI200600174

PATIENT
  Age: 47 Year
  Sex: Female

DRUGS (1)
  1. AMITIZA [Suspect]
     Indication: DRUG USE FOR UNKNOWN INDICATION
     Dosage: 24 MCG, BID, ORAL
     Route: 048
     Dates: start: 20061011

REACTIONS (2)
  - DIVERTICULUM [None]
  - LARGE INTESTINE PERFORATION [None]
